FAERS Safety Report 4707343-2 (Version None)
Quarter: 2005Q3

REPORT INFORMATION
  Report Type: 
  Country: None (occurrence: None)
  Receive Date: 20050706
  Receipt Date: 20050624
  Transmission Date: 20060218
  Serious: Yes (Death, Hospitalization)
  Sender: FDA-Public Use
  Company Number: FR-BRISTOL-MYERS SQUIBB COMPANY-13014337

PATIENT
  Age: 55 Year
  Sex: Male

DRUGS (6)
  1. ENDOXAN [Suspect]
     Indication: IMMUNOBLASTIC LYMPHOMA
     Route: 042
     Dates: start: 20050502, end: 20050502
  2. BLEOMYCIN [Suspect]
     Indication: IMMUNOBLASTIC LYMPHOMA
     Route: 042
     Dates: start: 20050502, end: 20050502
  3. ADRIACIN [Suspect]
     Indication: IMMUNOBLASTIC LYMPHOMA
     Route: 042
     Dates: start: 20050502, end: 20050502
  4. ELDISINE [Suspect]
     Indication: IMMUNOBLASTIC LYMPHOMA
     Route: 042
     Dates: start: 20050502, end: 20050502
  5. PREDNISONE TAB [Concomitant]
     Indication: IMMUNOBLASTIC LYMPHOMA
     Dates: start: 20050502, end: 20050502
  6. METHOTREXATE [Concomitant]
     Indication: IMMUNOBLASTIC LYMPHOMA
     Dates: start: 20050502, end: 20050502

REACTIONS (2)
  - DEATH [None]
  - PANCYTOPENIA [None]
